FAERS Safety Report 4945062-8 (Version None)
Quarter: 2006Q1

REPORT INFORMATION
  Report Type: 
  Country: None (occurrence: None)
  Receive Date: 20060117
  Receipt Date: 20050808
  Transmission Date: 20060701
  Serious: No
  Sender: FDA-Public Use
  Company Number: FEI2004-1235

PATIENT
  Age: 22 Year
  Sex: Female

DRUGS (1)
  1. INTRAUTERINE COPPER CONTRACEPTIVE [Suspect]
     Indication: CONTRACEPTION
     Dosage: INTRA- UTERINE
     Dates: start: 20040101, end: 20050810

REACTIONS (6)
  - ABDOMINAL DISTENSION [None]
  - HYPOMENORRHOEA [None]
  - OLIGOMENORRHOEA [None]
  - PAIN [None]
  - UTERINE PERFORATION [None]
  - VAGINAL INFECTION [None]
